FAERS Safety Report 15017794 (Version 2)
Quarter: 2018Q2

REPORT INFORMATION
  Report Type: Spontaneous
  Country: US (occurrence: US)
  Receive Date: 20180615
  Receipt Date: 20180615
  Transmission Date: 20180711
  Serious: No
  Sender: FDA-Public Use
  Company Number: US-PRINSTON PHARMACEUTICAL INC.-2018PRN00168

PATIENT
  Sex: Female
  Weight: 71.66 kg

DRUGS (7)
  1. UNSPECIFIED NAUSEA MEDICATION [Concomitant]
  2. UNSPECIFIED MUSCLE SPASM MEDICATION [Concomitant]
  3. DULOXETINE. [Suspect]
     Active Substance: DULOXETINE
     Indication: FIBROMYALGIA
     Dosage: 60 MG, 1X/DAY
     Route: 048
     Dates: start: 201803, end: 2018
  4. DULOXETINE. [Suspect]
     Active Substance: DULOXETINE
     Indication: ANXIETY
  5. DULOXETINE. [Suspect]
     Active Substance: DULOXETINE
     Indication: NEURALGIA
     Dosage: 60 MG, 1X/DAY
     Route: 048
     Dates: start: 2018, end: 20180404
  6. DULOXETINE. [Suspect]
     Active Substance: DULOXETINE
     Indication: DEPRESSION
  7. DULOXETINE. [Suspect]
     Active Substance: DULOXETINE
     Indication: CEREBRAL DISORDER

REACTIONS (5)
  - Headache [Recovering/Resolving]
  - Malaise [Recovering/Resolving]
  - Withdrawal syndrome [Not Recovered/Not Resolved]
  - Pain [Recovering/Resolving]
  - Nausea [Recovering/Resolving]

NARRATIVE: CASE EVENT DATE: 2018
